FAERS Safety Report 6161097-4 (Version None)
Quarter: 2009Q2

REPORT INFORMATION
  Report Type: 
  Country: None (occurrence: None)
  Receive Date: 20090421
  Receipt Date: 20090409
  Transmission Date: 20091009
  Serious: Yes (Hospitalization, Other)
  Sender: FDA-Public Use
  Company Number: GB-RANBAXY-2008RR-16202

PATIENT
  Age: 21 Year
  Sex: Female

DRUGS (7)
  1. DIAZEPAM [Suspect]
     Indication: PAIN MANAGEMENT
     Route: 065
  2. FENTANYL [Suspect]
     Indication: PAIN MANAGEMENT
     Route: 062
  3. MORPHINE SULFATE [Suspect]
     Indication: PAIN MANAGEMENT
     Route: 065
  4. OXYCODONE HCL [Suspect]
     Indication: PAIN MANAGEMENT
  5. AMITRIPTLINE HYDROCHLORIDE TAB [Suspect]
     Indication: PAIN MANAGEMENT
     Dosage: 50 MG, QD
     Route: 065
  6. GABAPENTIN [Suspect]
     Indication: PAIN MANAGEMENT
     Dosage: 900 MG, TID
     Route: 065
  7. ACETAMINOPHEN [Suspect]
     Indication: PAIN MANAGEMENT
     Dosage: 1 G, QID
     Route: 065

REACTIONS (2)
  - DRUG INEFFECTIVE [None]
  - SEDATION [None]
